FAERS Safety Report 8458657-4 (Version None)
Quarter: 2012Q2

REPORT INFORMATION
  Report Type: 
  Country: None (occurrence: None)
  Receive Date: 20120622
  Receipt Date: 20120618
  Transmission Date: 20120825
  Serious: Yes (Other)
  Sender: FDA-Public Use
  Company Number: TR-PFIZER INC-2012147170

PATIENT
  Sex: Male

DRUGS (2)
  1. VIAGRA [Suspect]
     Indication: ERECTILE DYSFUNCTION
     Dosage: 50 MG, UNK
     Route: 048
  2. LEVOTIRON [Concomitant]
     Indication: HYPOTHYROIDISM
     Dosage: 1X/DAY
     Route: 048

REACTIONS (4)
  - TACHYCARDIA [None]
  - DEAFNESS [None]
  - EAR DISORDER [None]
  - BURNING SENSATION [None]
